FAERS Safety Report 11234488 (Version 2)
Quarter: 2015Q3

REPORT INFORMATION
  Report Type: Spontaneous
  Country: SE (occurrence: SE)
  Receive Date: 20150702
  Receipt Date: 20150824
  Transmission Date: 20151125
  Serious: Yes (Congenital Anomaly)
  Sender: FDA-Public Use
  Company Number: SE-WATSON-2015-13080

PATIENT
  Sex: Female

DRUGS (2)
  1. SERTRALINE [Suspect]
     Active Substance: SERTRALINE HYDROCHLORIDE
     Indication: PRODUCT USED FOR UNKNOWN INDICATION
     Dosage: 50 MG, DAILY; THE MOTHER WAS TREATED SINCE 2013/10/01-CONTINUED TREATMENT
     Route: 064
     Dates: start: 20140919, end: 20150613
  2. AMLODIPIN SANDOZ                   /00972402/ [Suspect]
     Active Substance: AMLODIPINE BESYLATE
     Indication: HYPERTENSION
     Dosage: 5 MG, DAILY; THE MOTHER TREATED 2013/12/01-2014/12/18
     Route: 064
     Dates: start: 20140919, end: 20141218

REACTIONS (2)
  - Foetal exposure during pregnancy [Unknown]
  - Limb reduction defect [Unknown]

NARRATIVE: CASE EVENT DATE: 20150613
